FAERS Safety Report 4660283-X (Version None)
Quarter: 2005Q2

REPORT INFORMATION
  Report Type: 
  Country: None (occurrence: None)
  Receive Date: 20050427
  Receipt Date: 20050203
  Transmission Date: 20051028
  Serious: No
  Sender: FDA-Public Use
  Company Number: 212253

PATIENT
  Age: 37 Year
  Sex: Female

DRUGS (12)
  1. XOLAIR [Suspect]
     Indication: ASTHMA
     Dosage: 300 MG, QW, SUBCUTANEOUS
     Route: 058
     Dates: start: 20050113, end: 20050127
  2. ACCURETIC (HYDROCHLOROTHIAZIDE, QINAPRIL HYDROCHLORIDE) [Concomitant]
  3. LIPITOR [Concomitant]
  4. ADVAIR (SALMETEROL XINAFOATE, FLUTICASONE PROPIONATE) [Concomitant]
  5. ZYRTEC [Concomitant]
  6. ALBUTEROL (ALBUTEROL, ALBUTEROL SULFATE) [Concomitant]
  7. ATROVENT [Concomitant]
  8. INSULIN [Concomitant]
  9. MEDROL [Concomitant]
  10. SINGULAIR [Concomitant]
  11. NEURONTIN [Concomitant]
  12. ACTONEL [Concomitant]

REACTIONS (2)
  - RASH [None]
  - WHEEZING [None]
